FAERS Safety Report 8824746 (Version 1)
Quarter: 2012Q4

REPORT INFORMATION
  Report Type: Report from Study
  Country: US (occurrence: US)
  Receive Date: 20121004
  Receipt Date: 20121004
  Transmission Date: 20130627
  Serious: Yes (Hospitalization)
  Sender: FDA-Public Use
  Company Number: US-US-EMD SERONO, INC.-7164128

PATIENT
  Age: 52 Year
  Sex: Male
  Weight: 98 kg

DRUGS (3)
  1. REBIF [Suspect]
     Indication: MULTIPLE SCLEROSIS
     Route: 058
     Dates: start: 20120124
  2. NUVIGIL [Concomitant]
     Indication: FATIGUE
  3. PREDNISONE [Concomitant]
     Indication: PRODUCT USED FOR UNKNOWN INDICATION

REACTIONS (11)
  - Blood potassium decreased [Recovering/Resolving]
  - Dehydration [Recovering/Resolving]
  - Concussion [Recovering/Resolving]
  - Dizziness [Unknown]
  - Fall [Recovering/Resolving]
  - Nausea [Not Recovered/Not Resolved]
  - Feeling abnormal [Unknown]
  - Multiple sclerosis [Not Recovered/Not Resolved]
  - Depression [Unknown]
  - Fatigue [Not Recovered/Not Resolved]
  - Injection site pain [Not Recovered/Not Resolved]
